FAERS Safety Report 4298443-2 (Version None)
Quarter: 2004Q1

REPORT INFORMATION
  Report Type: 
  Country: None (occurrence: None)
  Receive Date: 20040218
  Receipt Date: 20030722
  Transmission Date: 20041129
  Serious: Yes (Other)
  Sender: FDA-Public Use
  Company Number: US-BRISTOL-MYERS SQUIBB COMPANY-12341301

PATIENT
  Age: 48 Year
  Sex: Female

DRUGS (16)
  1. STADOL [Suspect]
     Indication: MIGRAINE
     Route: 045
     Dates: start: 19970201
  2. DEMEROL [Concomitant]
     Indication: MIGRAINE
  3. XANAX [Concomitant]
  4. MEPERGAN FORTIS [Concomitant]
  5. VALIUM [Concomitant]
  6. APAP + OXYCODONE [Concomitant]
  7. LORCET-HD [Concomitant]
  8. AMBIEN [Concomitant]
  9. ROXICET [Concomitant]
  10. PERCOCET [Concomitant]
  11. HYDROCODONE BITARTRATE [Concomitant]
  12. ENDOCET [Concomitant]
  13. LORCET-HD [Concomitant]
  14. ASPIRIN + OXYCODONE [Concomitant]
  15. PHENERGAN [Concomitant]
  16. FLEXERIL [Concomitant]

REACTIONS (10)
  - ABDOMINAL DISTENSION [None]
  - BIPOLAR DISORDER [None]
  - CONSTIPATION [None]
  - DEPENDENCE [None]
  - DIARRHOEA [None]
  - DRUG ADDICT [None]
  - MAJOR DEPRESSION [None]
  - PANIC ATTACK [None]
  - SUICIDAL IDEATION [None]
  - VOMITING [None]
